FAERS Safety Report 23546229 (Version 1)
Quarter: 2024Q1

REPORT INFORMATION
  Report Type: Spontaneous
  Country: FR (occurrence: FR)
  Receive Date: 20240220
  Receipt Date: 20240220
  Transmission Date: 20240410
  Serious: Yes (Other)
  Sender: FDA-Public Use
  Company Number: None

PATIENT
  Age: 19 Year
  Sex: Female

DRUGS (2)
  1. PREGABALIN [Suspect]
     Active Substance: PREGABALIN
     Indication: Product dispensing error
     Dosage: 400 MG X 3/DAY, TEVA
     Route: 048
     Dates: start: 20231123, end: 20231218
  2. GABAPENTIN [Suspect]
     Active Substance: GABAPENTIN
     Indication: Product used for unknown indication
     Dosage: NOT ADMINISTERED, TEVA
     Route: 065

REACTIONS (5)
  - Nausea [Recovered/Resolved]
  - Overdose [Recovered/Resolved]
  - Product dispensing error [Recovered/Resolved]
  - Product name confusion [Recovered/Resolved]
  - Speech disorder [Recovered/Resolved]

NARRATIVE: CASE EVENT DATE: 20231123
